FAERS Safety Report 19182829 (Version 2)
Quarter: 2021Q2

REPORT INFORMATION
  Report Type: Spontaneous
  Country: FR (occurrence: FR)
  Receive Date: 20210427
  Receipt Date: 20210514
  Transmission Date: 20210717
  Serious: Yes (Death, Hospitalization)
  Sender: FDA-Public Use
  Company Number: FR-TEVA-2021-FR-1903584

PATIENT
  Age: 72 Year
  Sex: Male
  Weight: 85 kg

DRUGS (12)
  1. OXYCODONE [Concomitant]
     Active Substance: OXYCODONE
     Indication: PAIN
     Dosage: 20MILLIGRAM
     Route: 048
  2. SILODOSINE [Concomitant]
     Active Substance: SILODOSIN
     Indication: BENIGN PROSTATIC HYPERPLASIA
     Dosage: 8MILLIGRAM
     Route: 048
  3. LAROXYL 40 MG/ML, SOLUTION BUVABLE [Concomitant]
     Active Substance: AMITRIPTYLINE HYDROCHLORIDE
     Indication: DEPRESSION
     Dosage: 5MILLIGRAM
     Route: 048
  4. PARACETAMOL [Concomitant]
     Active Substance: ACETAMINOPHEN
     Indication: PAIN
     Dosage: 3GRAM
     Route: 048
  5. OXYNORMORO 5 MG, COMPRIME ORODISPERSIBLE [Concomitant]
     Active Substance: OXYCODONE HYDROCHLORIDE
     Indication: PAIN
     Dosage: 1DOSAGEFORM
     Route: 048
  6. ENALAPRIL (MALEATE D^) [Concomitant]
     Active Substance: ENALAPRIL MALEATE
     Indication: HYPERTENSION
     Dosage: 20MILLIGRAM
     Route: 048
  7. MACROGOL 4000 [Concomitant]
     Active Substance: POLYETHYLENE GLYCOL 4000
     Indication: CONSTIPATION
     Dosage: 1DOSAGEFORM
     Route: 048
  8. SOLUPRED 20 MG, COMPRIME EFFERVESCENT [Concomitant]
     Indication: NAUSEA
     Dosage: 1 DOSE OF 60MG PER TREATMENT:UNIT DOSE:60MILLIGRAM
     Route: 048
     Dates: start: 20210120, end: 20210303
  9. FIRMAGON [Concomitant]
     Active Substance: DEGARELIX ACETATE
     Indication: PROSTATE CANCER
     Route: 058
     Dates: start: 20201230
  10. ZARZIO 48 MU/0,5 ML, SOLUTION INJECTABLE OU POUR PERFUSION EN SERINGUE [Concomitant]
     Indication: NEUTROPENIA
     Dosage: 2DOSAGEFORM
     Route: 051
     Dates: start: 20210123
  11. DOCETAXEL. [Suspect]
     Active Substance: DOCETAXEL
     Indication: PROSTATE CANCER
     Dosage: 80MILLIGRAM
     Route: 042
     Dates: start: 20210120, end: 20210303
  12. SPIRONOLACTONE. [Concomitant]
     Active Substance: SPIRONOLACTONE
     Indication: HYPERTENSION
     Dosage: 50MILLIGRAM
     Route: 048

REACTIONS (5)
  - Mucosal inflammation [Recovering/Resolving]
  - Thrombocytopenia [Recovering/Resolving]
  - Agranulocytosis [Recovered/Resolved]
  - Skin exfoliation [Recovering/Resolving]
  - Mucocutaneous disorder [Recovering/Resolving]

NARRATIVE: CASE EVENT DATE: 202103
